FAERS Safety Report 4710529-4 (Version None)
Quarter: 2005Q3

REPORT INFORMATION
  Report Type: 
  Country: None (occurrence: None)
  Receive Date: 20050707
  Receipt Date: 20050627
  Transmission Date: 20060218
  Serious: Yes (Hospitalization)
  Sender: FDA-Public Use
  Company Number: 2005068138

PATIENT
  Age: 44 Year
  Sex: Female
  Weight: 67 kg

DRUGS (4)
  1. ATARAX [Suspect]
     Indication: ILL-DEFINED DISORDER
     Dosage: 100 MG (100 MG , 1 IN 1 TOTAL), ORAL
     Route: 048
     Dates: start: 20040923, end: 20040923
  2. SOLU-MEDROL [Suspect]
     Indication: ILL-DEFINED DISORDER
     Dosage: 500 MG (500 MG , 1 IN 1 TOTAL), INTRAVENOUS
     Route: 042
     Dates: start: 20040923, end: 20040923
  3. SIMULECT [Suspect]
     Indication: ILL-DEFINED DISORDER
     Dosage: 20 MG (20 MG, 1 IN 1 TOTAL), INTRAVENOUS
     Route: 042
     Dates: start: 20040923, end: 20040923
  4. CELLCEPT [Suspect]
     Indication: ILL-DEFINED DISORDER
     Dosage: 20 MG (20 MG, 1 IN 1TOTAL), INTRAVENOUS
     Route: 042
     Dates: start: 20040923, end: 20040923

REACTIONS (6)
  - FORMICATION [None]
  - INJECTION SITE REACTION [None]
  - RASH MACULO-PAPULAR [None]
  - STRESS [None]
  - URTICARIA CHOLINERGIC [None]
  - URTICARIA GENERALISED [None]
